FAERS Safety Report 6460052-4 (Version None)
Quarter: 2009Q4

REPORT INFORMATION
  Report Type: 
  Country: None (occurrence: None)
  Receive Date: 20091129
  Receipt Date: 20091120
  Transmission Date: 20100525
  Serious: Yes (Hospitalization)
  Sender: FDA-Public Use
  Company Number: PHHO2009CH12565

PATIENT
  Sex: Male

DRUGS (6)
  1. AFINITOR [Suspect]
     Indication: PROSTATE CANCER
     Dosage: 10 MG, QD
     Route: 048
     Dates: start: 20090919, end: 20091010
  2. AFINITOR [Suspect]
     Dosage: 5 MG DAILY
     Route: 048
     Dates: start: 20091026
  3. AUGMENTIN [Concomitant]
     Indication: ARTHRITIS
  4. VOLTAREN [Concomitant]
     Indication: PAIN
  5. VOLTAREN [Concomitant]
     Indication: INFLAMMATION
  6. DATOLAN [Concomitant]
     Indication: PAIN

REACTIONS (5)
  - ARTHRITIS [None]
  - ARTHROSCOPY [None]
  - CLOSTRIDIAL INFECTION [None]
  - DIARRHOEA [None]
  - PHARYNGITIS [None]
